FAERS Safety Report 9549886 (Version 1)
Quarter: 2013Q3

REPORT INFORMATION
  Report Type: Spontaneous
  Country: JP (occurrence: JP)
  Receive Date: 20130924
  Receipt Date: 20130924
  Transmission Date: 20140515
  Serious: No
  Sender: FDA-Public Use
  Company Number: JP-B.I. PHARMACEUTICALS,INC./RIDGEFIELD-2013-BI-29406NB

PATIENT
  Sex: Female

DRUGS (6)
  1. TRAZENTA [Suspect]
     Route: 048
     Dates: start: 201307
  2. LANTUS [Concomitant]
     Dosage: NR
     Route: 065
  3. METGLUCO [Concomitant]
     Dosage: NR
     Route: 065
  4. STARSIS [Concomitant]
     Dosage: NR
     Route: 065
  5. INSULIN [Concomitant]
     Dosage: NR
     Route: 065
  6. INSULIN [Concomitant]
     Dosage: NR
     Route: 065

REACTIONS (8)
  - Urticaria [Unknown]
  - Musculoskeletal pain [Unknown]
  - Nasal congestion [Unknown]
  - Blood glucose decreased [Unknown]
  - Oedema peripheral [Unknown]
  - Erythema [Unknown]
  - Rash [Unknown]
  - Hypersensitivity [Unknown]
